FAERS Safety Report 18009072 (Version 1)
Quarter: 2020Q3

REPORT INFORMATION
  Report Type: Spontaneous
  Country: US (occurrence: US)
  Receive Date: 20200710
  Receipt Date: 20200710
  Transmission Date: 20201103
  Serious: Yes (Hospitalization, Other)
  Sender: FDA-Public Use
  Company Number: US-SAOL THERAPEUTICS-2019SAO00464

PATIENT
  Age: 56 Year
  Sex: Male
  Weight: 49.89 kg

DRUGS (9)
  1. LIORESAL [Suspect]
     Active Substance: BACLOFEN
     Indication: CEREBRAL PALSY
     Dosage: 651.4 ?G/DAY  (PREMSUMED TYPO AND SHOULD HAVE BEEN NOTED AS 951.4)
     Route: 037
  2. VITAMIN C [Concomitant]
     Active Substance: ASCORBIC ACID
  3. MIRALAX [Concomitant]
     Active Substance: POLYETHYLENE GLYCOL 3350
  4. NEURONTIN [Concomitant]
     Active Substance: GABAPENTIN
  5. LIORESAL [Suspect]
     Active Substance: BACLOFEN
     Indication: MUSCLE SPASTICITY
     Dosage: 951.4 ?G/DAY (ALSO REPORTED AS ^951 ?G/DAY^
     Route: 037
  6. VALIUM [Concomitant]
     Active Substance: DIAZEPAM
  7. VITAMIN A [Concomitant]
     Active Substance: VITAMIN A
  8. VICODIN [Concomitant]
     Active Substance: ACETAMINOPHEN\HYDROCODONE BITARTRATE
  9. TYLENOL [Concomitant]
     Active Substance: ACETAMINOPHEN

REACTIONS (2)
  - Device failure [Recovered/Resolved]
  - Muscle tightness [Recovered/Resolved]

NARRATIVE: CASE EVENT DATE: 20191104
